FAERS Safety Report 22684220 (Version 3)
Quarter: 2023Q4

REPORT INFORMATION
  Report Type: Report from Study
  Country: JP (occurrence: JP)
  Receive Date: 20230709
  Receipt Date: 20231012
  Transmission Date: 20240110
  Serious: Yes (Other)
  Sender: FDA-Public Use
  Company Number: JP-002147023-NVSC2022JP055622

PATIENT
  Age: 58 Year
  Sex: Male
  Weight: 57.5 kg

DRUGS (8)
  1. LUTATHERA [Suspect]
     Active Substance: LUTETIUM OXODOTREOTIDE LU-177
     Indication: Neuroendocrine tumour of the rectum
     Dosage: 7.2 GBQ, QD
     Route: 042
     Dates: start: 20211222, end: 20211222
  2. LUTATHERA [Suspect]
     Active Substance: LUTETIUM OXODOTREOTIDE LU-177
     Dosage: 3.7 GBQ, QD
     Route: 042
     Dates: start: 20220216, end: 20220216
  3. ARGININE\LYSINE [Suspect]
     Active Substance: ARGININE\LYSINE
     Indication: Nephroprotective therapy
     Dosage: 1000 ML, QD
     Route: 042
     Dates: start: 20211222, end: 20211222
  4. ARGININE\LYSINE [Suspect]
     Active Substance: ARGININE\LYSINE
     Dosage: UNK
     Route: 042
  5. LANREOTIDE ACETATE [Suspect]
     Active Substance: LANREOTIDE ACETATE
     Indication: Neuroendocrine tumour of the rectum
     Dosage: UNK
     Route: 058
     Dates: start: 20211222, end: 20220215
  6. LANREOTIDE ACETATE [Suspect]
     Active Substance: LANREOTIDE ACETATE
     Dosage: UNK
     Route: 065
     Dates: start: 20220216, end: 20220302
  7. KYTRIL [Suspect]
     Active Substance: GRANISETRON HYDROCHLORIDE
     Indication: Prophylaxis of nausea and vomiting
     Dosage: UNK
     Route: 065
  8. NAUZELIN [Suspect]
     Active Substance: DOMPERIDONE
     Indication: Prophylaxis of nausea and vomiting
     Dosage: UNK
     Route: 065

REACTIONS (6)
  - Disseminated intravascular coagulation [Recovered/Resolved]
  - Anaemia [Recovering/Resolving]
  - Neuroendocrine tumour of the rectum [Unknown]
  - Malignant neoplasm progression [Unknown]
  - Platelet count decreased [Not Recovered/Not Resolved]
  - Platelet count decreased [Recovering/Resolving]

NARRATIVE: CASE EVENT DATE: 20220119
